FAERS Safety Report 11789608 (Version 1)
Quarter: 2015Q4

REPORT INFORMATION
  Report Type: Spontaneous
  Country: US (occurrence: US)
  Receive Date: 20151201
  Receipt Date: 20151201
  Transmission Date: 20160305
  Serious: No
  Sender: FDA-Public Use
  Company Number: US-009507513-1511USA013912

PATIENT
  Sex: Female
  Weight: 111.11 kg

DRUGS (1)
  1. NEXPLANON [Suspect]
     Active Substance: ETONOGESTREL
     Indication: CONTRACEPTION
     Dosage: 1 IMPLANT/ 3 YEARS; IN HER LEFT ARM
     Dates: start: 20130926

REACTIONS (2)
  - Haemorrhage [Unknown]
  - Amenorrhoea [Not Recovered/Not Resolved]
